FAERS Safety Report 6326822-8 (Version None)
Quarter: 2009Q3

REPORT INFORMATION
  Report Type: 
  Country: None (occurrence: None)
  Receive Date: 20090825
  Receipt Date: 20090819
  Transmission Date: 20100115
  Serious: Yes (Death)
  Sender: FDA-Public Use
  Company Number: IR-BAYER-200929160GPV

PATIENT
  Age: 25 Year
  Sex: Male

DRUGS (1)
  1. FACTOR VIII [Suspect]
     Indication: FACTOR VIII DEFICIENCY

REACTIONS (4)
  - BLOOD PRESSURE DECREASED [None]
  - DYSPNOEA [None]
  - HAEMOPTYSIS [None]
  - PULMONARY EMBOLISM [None]
